FAERS Safety Report 17484935 (Version 1)
Quarter: 2020Q1

REPORT INFORMATION
  Report Type: Spontaneous
  Country: ES (occurrence: ES)
  Receive Date: 20200302
  Receipt Date: 20200302
  Transmission Date: 20200409
  Serious: Yes (Hospitalization)
  Sender: FDA-Public Use
  Company Number: ES-OTSUKA-2020_005610

PATIENT
  Age: 29 Year
  Sex: Male

DRUGS (8)
  1. OLANZAPINE. [Suspect]
     Active Substance: OLANZAPINE
     Dosage: 300 MG, UNK
     Route: 065
     Dates: start: 2018
  2. ARIPIPRAZOLE. [Suspect]
     Active Substance: ARIPIPRAZOLE
     Indication: SCHIZOPHRENIA
     Dosage: 600 MG, UNK
     Route: 065
  3. ARIPIPRAZOLE. [Suspect]
     Active Substance: ARIPIPRAZOLE
     Indication: ACUTE PSYCHOSIS
     Dosage: UNK
     Route: 065
     Dates: start: 200810
  4. OLANZAPINE. [Suspect]
     Active Substance: OLANZAPINE
     Dosage: 405 MG, UNK
     Route: 065
     Dates: start: 2017
  5. ARIPIPRAZOLE. [Suspect]
     Active Substance: ARIPIPRAZOLE
     Dosage: 400 MG, UNK
     Route: 065
  6. ABILIFY [Suspect]
     Active Substance: ARIPIPRAZOLE
     Indication: SCHIZOPHRENIA
     Dosage: 7.5 MG/ML, EVERY 8 HOURS
     Route: 030
  7. OLANZAPINE. [Suspect]
     Active Substance: OLANZAPINE
     Indication: PRODUCT USED FOR UNKNOWN INDICATION
     Dosage: 30 MG, UNK
     Route: 065
     Dates: start: 2017
  8. RISPERIDONE. [Concomitant]
     Active Substance: RISPERIDONE
     Indication: PRODUCT USED FOR UNKNOWN INDICATION
     Dosage: UNK
     Route: 065

REACTIONS (14)
  - Psychotic disorder [Unknown]
  - Substance use [Unknown]
  - Restlessness [Unknown]
  - Refusal of treatment by patient [Unknown]
  - Overdose [Unknown]
  - Mania [Unknown]
  - Schizoaffective disorder [Unknown]
  - Mania [Unknown]
  - Schizophrenia [Unknown]
  - Drug abuse [Unknown]
  - Sedation [Unknown]
  - Schizophrenia [Unknown]
  - Psychotic disorder [Unknown]
  - Product use in unapproved indication [Unknown]

NARRATIVE: CASE EVENT DATE: 200810
